FAERS Safety Report 17939576 (Version 2)
Quarter: 2020Q2

REPORT INFORMATION
  Report Type: Spontaneous
  Country: US (occurrence: US)
  Receive Date: 20200624
  Receipt Date: 20200626
  Transmission Date: 20200714
  Serious: Yes (Death, Other)
  Sender: FDA-Public Use
  Company Number: NVSC2020US176168

PATIENT
  Age: 81 Year
  Sex: Male
  Weight: 105.3 kg

DRUGS (6)
  1. DIOVAN [Suspect]
     Active Substance: VALSARTAN
     Dosage: 320 MG
     Route: 065
     Dates: start: 20100203, end: 20131014
  2. VALSARTAN. [Suspect]
     Active Substance: VALSARTAN
     Indication: HYPERTENSION
     Route: 065
  3. VALSARTAN. [Suspect]
     Active Substance: VALSARTAN
     Indication: HYPERTENSION
     Route: 065
  4. VALSARTAN HCT ACTAVIS [Suspect]
     Active Substance: HYDROCHLOROTHIAZIDE\VALSARTAN
     Indication: HYPERTENSION
     Dosage: 320 MG
     Route: 065
     Dates: start: 20141022, end: 20160809
  5. VALSARTAN TEVA [Suspect]
     Active Substance: VALSARTAN
     Indication: HYPERTENSION
     Route: 065
  6. DIOVAN [Suspect]
     Active Substance: VALSARTAN
     Indication: HYPERTENSION
     Dosage: 160 MG
     Route: 065
     Dates: start: 20091210, end: 20091210

REACTIONS (8)
  - Dyspepsia [Unknown]
  - Hepatic cancer [Unknown]
  - Lung neoplasm malignant [Fatal]
  - Gastrooesophageal reflux disease [Unknown]
  - Metastasis [Fatal]
  - Hepatic neoplasm [Unknown]
  - Non-small cell lung cancer stage IV [Unknown]
  - Bone cancer [Unknown]

NARRATIVE: CASE EVENT DATE: 20170518
